FAERS Safety Report 7250985-3 (Version None)
Quarter: 2011Q1

REPORT INFORMATION
  Report Type: 
  Country: None (occurrence: None)
  Receive Date: 20110128
  Receipt Date: 20110119
  Transmission Date: 20110831
  Serious: Yes (Other)
  Sender: FDA-Public Use
  Company Number: B0689347A

PATIENT
  Age: 43 Year
  Sex: Female

DRUGS (1)
  1. SERETIDE [Suspect]
     Indication: ASTHMA
     Dosage: 1PUFF TWICE PER DAY
     Route: 055
     Dates: start: 20101026, end: 20101107

REACTIONS (5)
  - DIABETES MELLITUS [None]
  - POLLAKIURIA [None]
  - BLOOD GLUCOSE INCREASED [None]
  - VISION BLURRED [None]
  - DRY MOUTH [None]
